FAERS Safety Report 7354114-7 (Version None)
Quarter: 2011Q1

REPORT INFORMATION
  Report Type: 
  Country: None (occurrence: None)
  Receive Date: 20110315
  Receipt Date: 20110304
  Transmission Date: 20110831
  Serious: Yes (Death, Hospitalization)
  Sender: FDA-Public Use
  Company Number: IT-GENENTECH-294487

PATIENT
  Sex: Female

DRUGS (22)
  1. ENDOXAN [Suspect]
     Dosage: 750 MG/M2, UNK
     Route: 042
     Dates: start: 20091014, end: 20091014
  2. ENDOXAN [Suspect]
     Dosage: UNK
     Route: 042
     Dates: start: 20091124
  3. HYDROMORPHONE HCL [Concomitant]
     Indication: PRODUCT USED FOR UNKNOWN INDICATION
     Dosage: 12 MG, UNK
     Route: 048
     Dates: start: 20101223
  4. ENDOXAN [Suspect]
     Indication: DIFFUSE LARGE B-CELL LYMPHOMA
     Dosage: UNK
     Route: 042
     Dates: start: 20090901
  5. VINCRISTINE [Suspect]
     Dosage: UNK
     Route: 042
     Dates: start: 20091124
  6. METFORMIN HCL [Concomitant]
     Indication: PRODUCT USED FOR UNKNOWN INDICATION
     Dosage: 1000 MG, UNK
     Route: 048
     Dates: start: 20101223
  7. MABTHERA [Suspect]
     Dosage: 600 MG, UNK
     Route: 042
     Dates: start: 20091013, end: 20091013
  8. FARMORUBICINA [Suspect]
     Indication: DIFFUSE LARGE B-CELL LYMPHOMA
     Dosage: UNK
     Route: 042
     Dates: start: 20090901
  9. FARMORUBICINA [Suspect]
     Dosage: UNK
     Route: 042
     Dates: start: 20091124
  10. VINCRISTINE [Suspect]
     Dosage: UNK
     Route: 042
     Dates: start: 20101213
  11. MABTHERA [Suspect]
     Dosage: UNK
     Route: 042
     Dates: start: 20101013, end: 20101213
  12. FARMORUBICINA [Suspect]
     Dosage: UNK
     Route: 042
     Dates: start: 20091124
  13. DELTACORTENE [Concomitant]
     Indication: DIFFUSE LARGE B-CELL LYMPHOMA
     Dosage: 100 MG, UNK
     Route: 048
     Dates: start: 20091014, end: 20091018
  14. MABTHERA [Suspect]
     Indication: DIFFUSE LARGE B-CELL LYMPHOMA
     Dosage: 375 MG/M2, UNK
     Route: 042
     Dates: start: 20090901
  15. FARMORUBICINA [Suspect]
     Dosage: 75 MG/M2, UNK
     Route: 042
     Dates: start: 20091014, end: 20091014
  16. VINCRISTINE [Suspect]
     Indication: DIFFUSE LARGE B-CELL LYMPHOMA
     Dosage: 1.4 MG/M2, UNK
     Route: 042
     Dates: start: 20091014, end: 20091014
  17. ATENOLOLO [Concomitant]
     Indication: PRODUCT USED FOR UNKNOWN INDICATION
     Dosage: 100 MG, UNK
     Route: 048
     Dates: start: 20050101, end: 20091021
  18. CATAPRESAN TTS [Concomitant]
     Indication: PRODUCT USED FOR UNKNOWN INDICATION
     Dosage: 2.5 MG, UNK
     Route: 062
     Dates: start: 20050101, end: 20091021
  19. MABTHERA [Suspect]
     Dosage: 600 MG, UNK
     Dates: start: 20091123, end: 20091201
  20. ENDOXAN [Suspect]
     Dosage: UNK
     Dates: start: 20101013
  21. ALLOPURINOL [Concomitant]
     Indication: PRODUCT USED FOR UNKNOWN INDICATION
     Dosage: 300 MG, UNK
     Route: 048
     Dates: start: 20101223
  22. BARACLUDE [Concomitant]
     Indication: PRODUCT USED FOR UNKNOWN INDICATION
     Dosage: .5 MG, UNK
     Route: 048
     Dates: start: 20101223

REACTIONS (7)
  - DIARRHOEA [None]
  - FEBRILE NEUTROPENIA [None]
  - ACUTE PULMONARY OEDEMA [None]
  - STOMATITIS [None]
  - PLEURAL EFFUSION [None]
  - CATHETER SITE HAEMORRHAGE [None]
  - DEHYDRATION [None]
